FAERS Safety Report 13979332 (Version 1)
Quarter: 2017Q3

REPORT INFORMATION
  Report Type: Spontaneous
  Country: US (occurrence: US)
  Receive Date: 20170914
  Receipt Date: 20170914
  Transmission Date: 20171128
  Serious: Yes (Hospitalization)
  Sender: FDA-Public Use
  Company Number: US-ASTELLAS-2017US024037

PATIENT
  Age: 79 Year
  Sex: Male

DRUGS (4)
  1. XTANDI [Suspect]
     Active Substance: ENZALUTAMIDE
     Indication: HORMONE-REFRACTORY PROSTATE CANCER
     Dosage: 80 MG, TWICE DAILY (2 CAPSULES IN THE MORNING AND 2 CAPSULES IN THE EVENING)
     Route: 048
     Dates: start: 20170330, end: 20170608
  2. XTANDI [Suspect]
     Active Substance: ENZALUTAMIDE
     Route: 048
     Dates: end: 20170615
  3. ELIGARD [Suspect]
     Active Substance: LEUPROLIDE ACETATE
     Indication: PRODUCT USED FOR UNKNOWN INDICATION
     Dosage: UNK, UNKNOWN FREQ. (2X YEAR))
     Route: 065
     Dates: start: 2014
  4. XTANDI [Suspect]
     Active Substance: ENZALUTAMIDE
     Route: 048

REACTIONS (8)
  - Inappropriate schedule of drug administration [Unknown]
  - Feeling abnormal [Unknown]
  - Prostatic specific antigen increased [Unknown]
  - Drug prescribing error [Unknown]
  - Balance disorder [Recovered/Resolved]
  - Dizziness [Recovered/Resolved]
  - Treatment noncompliance [Unknown]
  - Dyspnoea [Recovered/Resolved]

NARRATIVE: CASE EVENT DATE: 201706
